FAERS Safety Report 5247900-0 (Version None)
Quarter: 2007Q1

REPORT INFORMATION
  Report Type: 
  Country: None (occurrence: None)
  Receive Date: 20061201
  Receipt Date: 20060812
  Transmission Date: 20070707
  Serious: No
  Sender: FDA-Public Use
  Company Number: 2006PV019443

PATIENT
  Age: 60 Year
  Sex: Female
  Weight: 121.564 kg

DRUGS (4)
  1. BYETTA [Suspect]
     Indication: DIABETES MELLITUS NON-INSULIN-DEPENDENT
     Dosage: SEE IMAGE
     Route: 058
     Dates: start: 20060617, end: 20060711
  2. BYETTA [Suspect]
     Indication: DIABETES MELLITUS NON-INSULIN-DEPENDENT
     Dosage: SEE IMAGE
     Route: 058
     Dates: start: 20060712
  3. ACTOS [Concomitant]
  4. METFORMIN HCL [Concomitant]

REACTIONS (6)
  - ANOREXIA [None]
  - BLOOD GLUCOSE INCREASED [None]
  - DYSPEPSIA [None]
  - HYPERHIDROSIS [None]
  - NAUSEA [None]
  - WEIGHT DECREASED [None]
